FAERS Safety Report 7301717-1 (Version None)
Quarter: 2011Q1

REPORT INFORMATION
  Report Type: 
  Country: None (occurrence: None)
  Receive Date: 20110218
  Receipt Date: 20110209
  Transmission Date: 20110831
  Serious: Yes (Other)
  Sender: FDA-Public Use
  Company Number: NL-ABBOTT-11P-114-0703889-00

PATIENT
  Sex: Male
  Weight: 68 kg

DRUGS (4)
  1. SILKIS [Concomitant]
     Indication: PSORIASIS
  2. DOVOBET [Concomitant]
     Indication: PSORIASIS
  3. HUMIRA [Suspect]
     Indication: PSORIASIS
     Route: 058
     Dates: start: 20091214
  4. ETANERCEPT [Concomitant]
     Indication: PSORIASIS
     Dates: start: 20100427

REACTIONS (3)
  - MYCOBACTERIUM MARINUM INFECTION [None]
  - NODULE [None]
  - ERYTHEMA [None]
